FAERS Safety Report 26002965 (Version 2)
Quarter: 2025Q4

REPORT INFORMATION
  Report Type: Spontaneous
  Country: US (occurrence: US)
  Receive Date: 20251106
  Receipt Date: 20251222
  Transmission Date: 20260117
  Serious: No
  Sender: SANOFI AVENTIS
  Company Number: US-SA-2025SA320293

PATIENT
  Age: 7 Year
  Sex: Female

DRUGS (6)
  1. DUPIXENT [Suspect]
     Active Substance: DUPILUMAB
     Indication: Dermatitis atopic
     Dosage: 300 MG, Q4W
     Route: 058
     Dates: start: 20241029
  2. BUDESONIDE [Concomitant]
     Active Substance: BUDESONIDE
  3. EUCRISA [Concomitant]
     Active Substance: CRISABOROLE
  4. MOMETASONE [Concomitant]
     Active Substance: MOMETASONE
  5. TACROLIMUS [Concomitant]
     Active Substance: TACROLIMUS
  6. ZYRTEC [Concomitant]
     Active Substance: CETIRIZINE HYDROCHLORIDE

REACTIONS (2)
  - Eye irritation [Unknown]
  - Drug ineffective [Unknown]
